FAERS Safety Report 16583078 (Version 1)
Quarter: 2019Q3

REPORT INFORMATION
  Report Type: Spontaneous
  Country: US (occurrence: US)
  Receive Date: 20190717
  Receipt Date: 20190717
  Transmission Date: 20191004
  Serious: No
  Sender: FDA-Public Use
  Company Number: US-JIANGSU HENGRUI MEDICINE CO., LTD.-2070900

PATIENT
  Sex: Male
  Weight: 83 kg

DRUGS (5)
  1. DOXORUBICIN [Suspect]
     Active Substance: DOXORUBICIN
  2. VINCRISTINE [Suspect]
     Active Substance: VINCRISTINE
  3. CYCLOPHOSPHAMIDE FOR INJECTION USP, 500 MG, 1 G AND 2 G PER SINGLE-DOS [Suspect]
     Active Substance: CYCLOPHOSPHAMIDE
     Indication: DIFFUSE LARGE B-CELL LYMPHOMA
  4. PREDNISONE. [Suspect]
     Active Substance: PREDNISONE
  5. RITUXIMAB EPOCH [Suspect]
     Active Substance: CYCLOPHOSPHAMIDE\DOXORUBICIN\ETOPOSIDE\PREDNISONE\RITUXIMAB\VINCRISTINE

REACTIONS (1)
  - Neoplasm progression [Recovering/Resolving]
